FAERS Safety Report 8740651 (Version 2)
Quarter: 2013Q2

REPORT INFORMATION
  Report Type: Spontaneous
  Country: GB (occurrence: GB)
  Receive Date: 20120823
  Receipt Date: 20130412
  Transmission Date: 20140414
  Serious: Yes (Other)
  Sender: FDA-Public Use
  Company Number: PHHY2012GB071182

PATIENT
  Sex: Male

DRUGS (1)
  1. CIPROFLOXACIN [Suspect]
     Indication: TYPHOID FEVER

REACTIONS (8)
  - Osteomyelitis [Unknown]
  - Pathogen resistance [Unknown]
  - Skin infection [Recovering/Resolving]
  - Skin mass [Recovering/Resolving]
  - Infected dermal cyst [Unknown]
  - Wound secretion [Recovered/Resolved]
  - Abscess [Unknown]
  - Granuloma [Unknown]
